FAERS Safety Report 7920190-3 (Version None)
Quarter: 2011Q4

REPORT INFORMATION
  Report Type: 
  Country: None (occurrence: None)
  Receive Date: 20111117
  Receipt Date: 20111114
  Transmission Date: 20120403
  Serious: Yes (Hospitalization)
  Sender: FDA-Public Use
  Company Number: FR-PFIZER INC-2011277872

PATIENT
  Age: 89 Year
  Sex: Female

DRUGS (12)
  1. ACETAMINOPHEN AND TRAMADOL HCL [Concomitant]
     Dosage: 2 DF, 3X/DAY
     Dates: end: 20111025
  2. LASIX [Suspect]
     Indication: OEDEMA PERIPHERAL
     Dosage: 40 MG, DAILY
     Route: 048
  3. NEXIUM [Suspect]
     Indication: PROPHYLAXIS
     Dosage: 20 MG, DAILY
     Route: 048
     Dates: end: 20111020
  4. MIANSERIN [Concomitant]
     Dosage: 1 DF, 1X/DAY
  5. BISOPROLOL FUMARATE [Concomitant]
     Dosage: 1.25 MG, DAILY
  6. BIMATOPROST AND TIMOLOL MALEATE [Concomitant]
  7. LOVENOX [Concomitant]
     Dosage: 1 INJECTION, DAILY
  8. ASPIRIN [Concomitant]
     Dosage: 75 MG, 1X/DAY
  9. VITAMIN A [Concomitant]
  10. ALDACTONE [Suspect]
     Indication: OEDEMA PERIPHERAL
     Dosage: 25 MG, DAILY
     Route: 048
  11. LAMICTAL [Suspect]
     Indication: PARTIAL SEIZURES
     Dosage: 25 MG, DAILY
     Route: 048
     Dates: start: 20111004, end: 20111012
  12. AZOPT [Concomitant]

REACTIONS (2)
  - LOSS OF CONSCIOUSNESS [None]
  - PEMPHIGOID [None]
